FAERS Safety Report 13922616 (Version 1)
Quarter: 2017Q3

REPORT INFORMATION
  Report Type: Spontaneous
  Country: FR (occurrence: FR)
  Receive Date: 20170830
  Receipt Date: 20170830
  Transmission Date: 20171127
  Serious: Yes (Hospitalization)
  Sender: FDA-Public Use
  Company Number: PHHY2017FR124499

PATIENT
  Age: 38 Year
  Sex: Female

DRUGS (2)
  1. RIAMET [Suspect]
     Active Substance: ARTEMETHER\LUMEFANTRINE
     Indication: MALARIA
     Dosage: 4 DF, BID
     Route: 048
     Dates: start: 20170521, end: 20170523
  2. MALACEF [Suspect]
     Active Substance: ARTESUNATE
     Indication: MALARIA
     Dosage: UNK
     Route: 042
     Dates: start: 20170517, end: 20170520

REACTIONS (2)
  - Haemolytic anaemia [Recovering/Resolving]
  - Plasmodium falciparum infection [Recovering/Resolving]

NARRATIVE: CASE EVENT DATE: 20170528
